FAERS Safety Report 16462652 (Version 1)
Quarter: 2019Q2

REPORT INFORMATION
  Report Type: Spontaneous
  Country: US (occurrence: US)
  Receive Date: 20190621
  Receipt Date: 20190621
  Transmission Date: 20190711
  Serious: Yes (Other)
  Sender: FDA-Public Use
  Company Number: US-TORRENT-00008898

PATIENT
  Age: 55 Year
  Sex: Female
  Weight: 117 kg

DRUGS (1)
  1. LOSARTAN AND HYDROCHLOROTHIAZIDE [Suspect]
     Active Substance: HYDROCHLOROTHIAZIDE\LOSARTAN POTASSIUM
     Indication: HYPERTENSION
     Dosage: 100/25 MG TWICE A DAY SINCE MANY YEARS
     Dates: end: 201905

REACTIONS (9)
  - Dizziness [Unknown]
  - Nausea [Unknown]
  - Eating disorder [Unknown]
  - Dyspnoea [Unknown]
  - Vision blurred [Unknown]
  - Palpitations [Unknown]
  - Condition aggravated [Unknown]
  - Fall [Unknown]
  - Walking aid user [Unknown]
